FAERS Safety Report 6900481-5 (Version None)
Quarter: 2010Q3

REPORT INFORMATION
  Report Type: 
  Country: None (occurrence: None)
  Receive Date: 20100803
  Receipt Date: 20100722
  Transmission Date: 20110219
  Serious: Yes (Other)
  Sender: FDA-Public Use
  Company Number: GB-PFIZER INC-2010092390

PATIENT
  Sex: Female

DRUGS (1)
  1. TOVIAZ [Suspect]
     Dosage: UNK

REACTIONS (5)
  - DECREASED APPETITE [None]
  - DRY MOUTH [None]
  - FATIGUE [None]
  - FLUID RETENTION [None]
  - PAROSMIA [None]
